FAERS Safety Report 22042239 (Version 2)
Quarter: 2023Q1

REPORT INFORMATION
  Report Type: Spontaneous
  Country: US (occurrence: US)
  Receive Date: 20230227
  Receipt Date: 20230228
  Transmission Date: 20230418
  Serious: Yes (Hospitalization, Other)
  Sender: FDA-Public Use
  Company Number: US-SUN PHARMACEUTICAL INDUSTRIES LTD-2020R1-259705

PATIENT
  Age: 56 Year
  Sex: Male
  Weight: 102 kg

DRUGS (5)
  1. CLOZAPINE [Suspect]
     Active Substance: CLOZAPINE
     Indication: Schizoaffective disorder
     Dosage: 25 MILLIGRAM, QD/ AT NIGHT
     Route: 065
  2. CLOZAPINE [Suspect]
     Active Substance: CLOZAPINE
     Dosage: 350 MILLIGRAM, QD/ AT NIGHT
     Route: 065
  3. CLOZAPINE [Suspect]
     Active Substance: CLOZAPINE
     Dosage: 200 MILLIGRAM, QD
     Route: 065
  4. CLOZAPINE [Suspect]
     Active Substance: CLOZAPINE
     Dosage: 300 MILLIGRAM, QD
     Route: 065
  5. CLOZAPINE [Suspect]
     Active Substance: CLOZAPINE
     Dosage: 350 MILLIGRAM, QD/ AT NIGHT
     Route: 065

REACTIONS (6)
  - Pulmonary embolism [Recovering/Resolving]
  - Tachycardia [Recovering/Resolving]
  - Intestinal obstruction [Recovering/Resolving]
  - Enuresis [Recovering/Resolving]
  - Salivary hypersecretion [Recovering/Resolving]
  - Tardive dyskinesia [Recovering/Resolving]
